FAERS Safety Report 6250185-X (Version None)
Quarter: 2009Q2

REPORT INFORMATION
  Report Type: 
  Country: None (occurrence: None)
  Receive Date: 20090626
  Receipt Date: 20090617
  Transmission Date: 20091009
  Serious: Yes (Death, Hospitalization, Other)
  Sender: FDA-Public Use
  Company Number: 2009-02436

PATIENT
  Age: 46 Year
  Sex: Male

DRUGS (14)
  1. VELCADE [Suspect]
     Indication: DRUG USE FOR UNKNOWN INDICATION
     Dates: start: 20081101, end: 20081201
  2. REVLIMID [Suspect]
     Indication: MULTIPLE MYELOMA
     Dosage: 5 MG, ORAL
     Route: 048
     Dates: start: 20081121, end: 20090108
  3. THALOMID [Suspect]
     Indication: MULTIPLE MYELOMA
     Dosage: 100 MG, ORAL; 200 MG, ORAL
     Route: 048
     Dates: start: 20081201
  4. THALOMID [Suspect]
     Indication: MULTIPLE MYELOMA
     Dosage: 100 MG, ORAL; 200 MG, ORAL
     Route: 048
     Dates: start: 20090101
  5. DEXAMETHASONE TAB [Suspect]
     Indication: DRUG USE FOR UNKNOWN INDICATION
     Dates: start: 20081101
  6. DOXIL [Suspect]
     Indication: DRUG USE FOR UNKNOWN INDICATION
  7. FENTANYL-100 [Concomitant]
  8. RENAGEL [Concomitant]
  9. MEGESTROL ACETATE [Concomitant]
  10. VICODIN [Concomitant]
  11. OMEPRAZOLE [Concomitant]
  12. SEPTRA [Concomitant]
  13. TEMAZEPAM [Concomitant]
  14. VITAMIN B COMPLEX (PYRIDOXINE HYDROCHLORIDE, RIBOFLAVIN, CALCIUM PANTO [Concomitant]

REACTIONS (3)
  - ANAEMIA [None]
  - DISEASE PROGRESSION [None]
  - THROMBOCYTOPENIA [None]
